FAERS Safety Report 24901427 (Version 1)
Quarter: 2025Q1

REPORT INFORMATION
  Report Type: Report from Study
  Country: BR (occurrence: BR)
  Receive Date: 20250129
  Receipt Date: 20250129
  Transmission Date: 20250409
  Serious: Yes (Hospitalization, Other)
  Sender: AMGEN
  Company Number: BR-AMGEN-BRASL2024149695

PATIENT
  Age: 61 Year
  Sex: Female

DRUGS (2)
  1. VECTIBIX [Suspect]
     Active Substance: PANITUMUMAB
     Indication: Gastrointestinal cancer metastatic
     Route: 042
     Dates: start: 202306, end: 202311
  2. VECTIBIX [Suspect]
     Active Substance: PANITUMUMAB
     Dosage: UNK, Q3WK (EVERY 21 DAYS) (CATHETER)
     Route: 040

REACTIONS (14)
  - Skin wound [Recovering/Resolving]
  - Metastases to liver [Not Recovered/Not Resolved]
  - Immunodeficiency [Recovering/Resolving]
  - Gastrointestinal pain [Recovering/Resolving]
  - Vitiligo [Recovering/Resolving]
  - Diarrhoea [Recovering/Resolving]
  - Skin haemorrhage [Recovering/Resolving]
  - Pustule [Recovering/Resolving]
  - Nail disorder [Recovering/Resolving]
  - Dermatitis [Recovering/Resolving]
  - Skin lesion [Recovering/Resolving]
  - Malaise [Recovering/Resolving]
  - Pyrexia [Recovering/Resolving]
  - Off label use [Unknown]

NARRATIVE: CASE EVENT DATE: 20240101
